FAERS Safety Report 9282613 (Version 1)
Quarter: 2013Q2

REPORT INFORMATION
  Report Type: Spontaneous
  Country: US (occurrence: US)
  Receive Date: 20130510
  Receipt Date: 20130510
  Transmission Date: 20140414
  Serious: Yes (Disabling, Other)
  Sender: FDA-Public Use
  Company Number: US-PFIZER INC-2013141944

PATIENT
  Sex: Male

DRUGS (1)
  1. DEPO-PROVERA [Suspect]
     Indication: CONTRACEPTION
     Dosage: UNK
     Route: 064

REACTIONS (5)
  - Maternal exposure during pregnancy [Unknown]
  - Premature baby [Unknown]
  - Cerebral haemorrhage neonatal [Unknown]
  - Nervous system disorder [Unknown]
  - Facial paresis [Unknown]
